FAERS Safety Report 21055084 (Version 1)
Quarter: 2022Q3

REPORT INFORMATION
  Report Type: Spontaneous
  Country: US (occurrence: US)
  Receive Date: 20220707
  Receipt Date: 20220707
  Transmission Date: 20221027
  Serious: No
  Sender: FDA-Public Use
  Company Number: US-PHARMALEX-2021001031

PATIENT
  Age: 22 Year
  Sex: Female

DRUGS (14)
  1. TRAMADOL HYDROCHLORIDE [Suspect]
     Active Substance: TRAMADOL HYDROCHLORIDE
     Indication: Occipital neuralgia
     Dosage: UNK
     Route: 065
  2. TRAMADOL HYDROCHLORIDE [Suspect]
     Active Substance: TRAMADOL HYDROCHLORIDE
     Indication: Trigeminal neuralgia
  3. CAPSAICIN [Suspect]
     Active Substance: CAPSAICIN
     Indication: Occipital neuralgia
     Dosage: UNK
     Route: 061
  4. CAPSAICIN [Suspect]
     Active Substance: CAPSAICIN
     Indication: Trigeminal neuralgia
  5. LIDOCAINE [Suspect]
     Active Substance: LIDOCAINE
     Indication: Occipital neuralgia
     Dosage: UNK
     Route: 061
  6. LIDOCAINE [Suspect]
     Active Substance: LIDOCAINE
     Indication: Trigeminal neuralgia
  7. ACETAMINOPHEN [Concomitant]
     Active Substance: ACETAMINOPHEN
     Indication: Trigeminal neuralgia
     Dosage: UNK
     Route: 065
  8. ACETAMINOPHEN [Concomitant]
     Active Substance: ACETAMINOPHEN
     Indication: Occipital neuralgia
  9. GABAPENTIN [Concomitant]
     Active Substance: GABAPENTIN
     Indication: Occipital neuralgia
     Dosage: UNK
     Route: 065
  10. GABAPENTIN [Concomitant]
     Active Substance: GABAPENTIN
     Indication: Trigeminal neuralgia
  11. PREGABALIN [Concomitant]
     Active Substance: PREGABALIN
     Indication: Trigeminal neuralgia
     Dosage: UNK
     Route: 065
  12. PREGABALIN [Concomitant]
     Active Substance: PREGABALIN
     Indication: Occipital neuralgia
  13. LORAZEPAM [Concomitant]
     Active Substance: LORAZEPAM
     Indication: Occipital neuralgia
     Dosage: UNK
     Route: 065
  14. LORAZEPAM [Concomitant]
     Active Substance: LORAZEPAM
     Indication: Trigeminal neuralgia

REACTIONS (1)
  - Drug ineffective [Unknown]
